FAERS Safety Report 8420554-8 (Version None)
Quarter: 2012Q2

REPORT INFORMATION
  Report Type: 
  Country: None (occurrence: None)
  Receive Date: 20120608
  Receipt Date: 20120529
  Transmission Date: 20120825
  Serious: No
  Sender: FDA-Public Use
  Company Number: US-BIOGENIDEC-2011BI043152

PATIENT
  Sex: Female

DRUGS (1)
  1. TYSABRI [Suspect]
     Indication: MULTIPLE SCLEROSIS
     Route: 042
     Dates: start: 20080709, end: 20110812

REACTIONS (7)
  - HOT FLUSH [None]
  - FOOD ALLERGY [None]
  - MENTAL IMPAIRMENT [None]
  - NAUSEA [None]
  - PALPITATIONS [None]
  - HYPERHIDROSIS [None]
  - CONSTIPATION [None]
